FAERS Safety Report 4303756-1 (Version None)
Quarter: 2004Q1

REPORT INFORMATION
  Report Type: 
  Country: None (occurrence: None)
  Receive Date: 20040225
  Receipt Date: 20040202
  Transmission Date: 20041129
  Serious: Yes (Other)
  Sender: FDA-Public Use
  Company Number: PHBS2004JP01588

PATIENT
  Age: 17 Year
  Sex: Female

DRUGS (1)
  1. TEGRETOL [Suspect]
     Route: 048

REACTIONS (5)
  - DEPRESSED LEVEL OF CONSCIOUSNESS [None]
  - EMBOLISM VENOUS [None]
  - OVERDOSE [None]
  - PULMONARY EMBOLISM [None]
  - SUICIDAL IDEATION [None]
